FAERS Safety Report 4625063-X (Version None)
Quarter: 2005Q2

REPORT INFORMATION
  Report Type: 
  Country: None (occurrence: None)
  Receive Date: 20050325
  Receipt Date: 20041216
  Transmission Date: 20051028
  Serious: No
  Sender: FDA-Public Use
  Company Number: US_0501109916

PATIENT
  Age: 70 Year
  Sex: Female

DRUGS (7)
  1. FORTEO [Suspect]
     Indication: OSTEOPOROSIS
     Dosage: 20 UG
     Dates: start: 20041215
  2. MECLIZINE [Concomitant]
  3. CARDIZEM CD [Concomitant]
  4. PLAVIX [Concomitant]
  5. CALCIUM PLUS D [Concomitant]
  6. PRILOSEC (OMEPRAZOLE RATIOPHARM) [Concomitant]
  7. MULTI-VITAMIN [Concomitant]

REACTIONS (3)
  - DIZZINESS [None]
  - FATIGUE [None]
  - MUSCLE SPASMS [None]
